FAERS Safety Report 5168479-8 (Version None)
Quarter: 2006Q4

REPORT INFORMATION
  Report Type: 
  Country: None (occurrence: None)
  Receive Date: 20061208
  Receipt Date: 20061129
  Transmission Date: 20070319
  Serious: Yes (Hospitalization)
  Sender: FDA-Public Use
  Company Number: GB-ROCHE-473851

PATIENT
  Age: 43 Year
  Sex: Male

DRUGS (10)
  1. SAQUINAVIR [Suspect]
     Route: 048
     Dates: start: 19980101
  2. CYCLOPHOSPHAMIDE [Suspect]
     Indication: BURKITT'S LYMPHOMA
     Dosage: CYCLICAL DOSING - 6 CYCLES
     Route: 042
     Dates: start: 19980401, end: 19980901
  3. CYTOSINE ARABINOSIDE [Suspect]
     Indication: BURKITT'S LYMPHOMA
     Route: 037
     Dates: start: 19980401, end: 19980901
  4. DOXORUBICIN [Suspect]
     Indication: BURKITT'S LYMPHOMA
     Dosage: CYCLICAL DOSING - 6 CYCLES
     Route: 042
     Dates: start: 19980401, end: 19980901
  5. HYDROCORTISONE [Suspect]
     Indication: BURKITT'S LYMPHOMA
     Route: 037
     Dates: start: 19980401, end: 19980901
  6. METHOTREXATE [Suspect]
     Indication: BURKITT'S LYMPHOMA
     Route: 037
     Dates: start: 19980401, end: 19980901
  7. PREDNISOLONE [Suspect]
     Indication: BURKITT'S LYMPHOMA
     Dosage: CYCLICAL DOSING - 6 CYCLES. PT RECEIVED A TOTAL OF 2.35 GRAMS OVER 3.5 MONTHS
     Route: 048
     Dates: start: 19980401, end: 19980901
  8. RITONAVIR [Suspect]
     Route: 048
     Dates: start: 19980101
  9. VINCRISTINE [Suspect]
     Indication: BURKITT'S LYMPHOMA
     Dosage: CYCLICAL DOSING - 6 CYCLES
     Route: 042
     Dates: start: 19980401, end: 19980901
  10. COTRIM D.S. [Concomitant]
     Route: 048

REACTIONS (3)
  - OSTEONECROSIS [None]
  - OSTEOPOROSIS [None]
  - SPINAL FRACTURE [None]
